FAERS Safety Report 23073525 (Version 4)
Quarter: 2024Q1

REPORT INFORMATION
  Report Type: Spontaneous
  Country: US (occurrence: US)
  Receive Date: 20231017
  Receipt Date: 20240112
  Transmission Date: 20240410
  Serious: No
  Sender: FDA-Public Use
  Company Number: US-BRISTOL-MYERS SQUIBB COMPANY-2023-147264

PATIENT
  Age: 50 Year
  Sex: Male
  Weight: 90.72 kg

DRUGS (1)
  1. REVLIMID [Suspect]
     Active Substance: LENALIDOMIDE
     Indication: Plasma cell myeloma
     Route: 048
     Dates: start: 202304

REACTIONS (6)
  - Full blood count decreased [Unknown]
  - Off label use [Unknown]
  - White blood cell count decreased [Unknown]
  - Cough [Unknown]
  - Sneezing [Unknown]
  - Pyrexia [Unknown]

NARRATIVE: CASE EVENT DATE: 20230102
